FAERS Safety Report 10595274 (Version 3)
Quarter: 2015Q2

REPORT INFORMATION
  Report Type: Spontaneous
  Country: US (occurrence: None)
  Receive Date: 20141118
  Receipt Date: 20150403
  Transmission Date: 20150821
  Serious: Yes (Disabling, Other)
  Sender: FDA-Public Use
  Company Number: 2014-20720

PATIENT
  Age: 55 Year
  Sex: Male

DRUGS (5)
  1. METFORMIN [Concomitant]
     Active Substance: METFORMIN HYDROCHLORIDE
  2. EYLEA [Suspect]
     Active Substance: AFLIBERCEPT
     Indication: EYE HAEMORRHAGE
     Dosage: 05. MILILLITERS(ML) , EVERY FOUR WEEKS OS
     Route: 031
     Dates: start: 20140909, end: 20141120
  3. EYLEA [Suspect]
     Active Substance: AFLIBERCEPT
     Indication: OPTIC ISCHAEMIC NEUROPATHY
     Dosage: 05. MILILLITERS(ML) , EVERY FOUR WEEKS OS
     Route: 031
     Dates: start: 20140909, end: 20141120
  4. INSULIN [Concomitant]
     Active Substance: INSULIN NOS
  5. GLYBURIDE (GLIBENCLAMIDE) [Concomitant]
     Active Substance: GLYBURIDE

REACTIONS (2)
  - Blindness transient [None]
  - Off label use [None]

NARRATIVE: CASE EVENT DATE: 20141117
